FAERS Safety Report 22809025 (Version 6)
Quarter: 2024Q1

REPORT INFORMATION
  Report Type: Spontaneous
  Country: US (occurrence: US)
  Receive Date: 20230810
  Receipt Date: 20240110
  Transmission Date: 20240410
  Serious: No
  Sender: FDA-Public Use
  Company Number: US-PFIZER INC-PV202300136388

PATIENT
  Age: 16 Year
  Sex: Male

DRUGS (1)
  1. GENOTROPIN [Suspect]
     Active Substance: SOMATROPIN
     Dosage: 2.2 MG

REACTIONS (5)
  - Product quality issue [Unknown]
  - Device leakage [Unknown]
  - Device mechanical issue [Unknown]
  - Device malfunction [Unknown]
  - Drug dose omission by device [Unknown]
